FAERS Safety Report 7198361-6 (Version None)
Quarter: 2010Q4

REPORT INFORMATION
  Report Type: 
  Country: None (occurrence: None)
  Receive Date: 20101227
  Receipt Date: 20101216
  Transmission Date: 20110411
  Serious: Yes (Other)
  Sender: FDA-Public Use
  Company Number: US-JNJFOC-20101003545

PATIENT
  Sex: Male
  Weight: 116.12 kg

DRUGS (3)
  1. DURAGESIC-50 [Suspect]
     Indication: PAIN
     Dosage: NDC# 50458-093-05
     Route: 062
  2. ACTOS [Concomitant]
     Indication: DIABETES MELLITUS
     Route: 048
  3. GLIMEPIRIDE [Concomitant]
     Indication: DIABETES MELLITUS
     Route: 048

REACTIONS (3)
  - DIABETES MELLITUS [None]
  - NAUSEA [None]
  - PRODUCT ADHESION ISSUE [None]
